FAERS Safety Report 8151650-0 (Version None)
Quarter: 2012Q1

REPORT INFORMATION
  Report Type: 
  Country: None (occurrence: None)
  Receive Date: 20120220
  Receipt Date: 20120210
  Transmission Date: 20120608
  Serious: Yes (Other)
  Sender: FDA-Public Use
  Company Number: CA-ROCHE-1039484

PATIENT
  Sex: Male
  Weight: 89.892 kg

DRUGS (12)
  1. PANTOPRAZOLE SODIUM [Concomitant]
  2. CLONAZEPAM [Concomitant]
  3. NAPROXEN [Concomitant]
  4. ACTEMRA [Suspect]
     Indication: RHEUMATOID ARTHRITIS
     Route: 042
     Dates: start: 20111018, end: 20111208
  5. FOLIC ACID [Concomitant]
  6. NOVO-GESIC [Concomitant]
  7. PLAQUENIL [Concomitant]
  8. PREDNISONE [Concomitant]
  9. ARICEPT [Concomitant]
  10. ASPIRIN [Concomitant]
  11. LIPITOR [Concomitant]
  12. LYRICA [Concomitant]

REACTIONS (1)
  - SKIN REACTION [None]
